FAERS Safety Report 10763024 (Version 1)
Quarter: 2015Q1

REPORT INFORMATION
  Report Type: Spontaneous
  Country: US (occurrence: None)
  Receive Date: 20150128
  Receipt Date: 20150128
  Transmission Date: 20150721
  Serious: Yes (Hospitalization)
  Sender: FDA-Public Use
  Company Number: 1350523

PATIENT
  Age: 65 Year
  Sex: Male
  Weight: 105.5 kg

DRUGS (9)
  1. TOPROL (METOPROLOL SUCCINATE) [Concomitant]
  2. AVODART [Concomitant]
     Active Substance: DUTASTERIDE
  3. COLAZAL (BALSALAZIDE DISODIUM) [Concomitant]
  4. ZOMIG (ZOLMITRIPTAN) [Concomitant]
  5. UROXATRAL (ALFUZOSIN HYDROCHLORIDE) [Concomitant]
  6. SIMVASTATIN. [Concomitant]
     Active Substance: SIMVASTATIN
  7. RITUXAN [Suspect]
     Active Substance: RITUXIMAB
     Indication: IMMUNOGLOBULIN G4 RELATED SCLEROSING DISEASE
     Route: 042
     Dates: start: 20121003
  8. BUDESONIDE. [Concomitant]
     Active Substance: BUDESONIDE
  9. HYZAAR (HYDROCHLOROTHIAZIDE, LOSARTAN POTASSIUM) [Concomitant]

REACTIONS (1)
  - Sinusitis [None]

NARRATIVE: CASE EVENT DATE: 20131212
